FAERS Safety Report 7942669-0 (Version None)
Quarter: 2011Q4

REPORT INFORMATION
  Report Type: 
  Country: None (occurrence: None)
  Receive Date: 20111128
  Receipt Date: 20111114
  Transmission Date: 20120403
  Serious: Yes (Hospitalization, Other)
  Sender: FDA-Public Use
  Company Number: US-EISAI INC-E3810-05091-SPO-US

PATIENT
  Sex: Female
  Weight: 59 kg

DRUGS (8)
  1. LEVOTHYROXINE SODIUM [Concomitant]
     Indication: THYROID DISORDER
     Route: 048
  2. ZANTAC [Concomitant]
     Route: 048
     Dates: start: 20080101
  3. XANAX [Concomitant]
     Indication: SLEEP DISORDER
     Route: 048
     Dates: start: 20110101
  4. LEXAPRO [Suspect]
     Indication: ANXIETY
     Route: 048
  5. DIOVAN [Concomitant]
     Indication: BLOOD PRESSURE MANAGEMENT
     Route: 048
  6. ACIPHEX [Suspect]
     Route: 048
     Dates: start: 20110101
  7. PINDOLOL [Concomitant]
     Indication: BLOOD PRESSURE MANAGEMENT
     Route: 048
  8. PREDNISONE TAB [Concomitant]
     Indication: TEMPORAL ARTERITIS
     Route: 048
     Dates: start: 20100101

REACTIONS (2)
  - PRURITUS [None]
  - LUNG NEOPLASM MALIGNANT [None]
